FAERS Safety Report 6279936-5 (Version None)
Quarter: 2009Q3

REPORT INFORMATION
  Report Type: 
  Country: None (occurrence: None)
  Receive Date: 20090723
  Receipt Date: 20090304
  Transmission Date: 20100115
  Serious: No
  Sender: FDA-Public Use
  Company Number: US-AMGEN-KDL336728

PATIENT

DRUGS (2)
  1. EPOGEN [Suspect]
     Indication: DIALYSIS
     Dates: start: 20060101
  2. IRON [Concomitant]

REACTIONS (4)
  - DRY SKIN [None]
  - PRURITUS [None]
  - SKIN EXFOLIATION [None]
  - SKIN REACTION [None]
